FAERS Safety Report 6469348-3 (Version None)
Quarter: 2009Q4

REPORT INFORMATION
  Report Type: 
  Country: None (occurrence: None)
  Receive Date: 20091203
  Receipt Date: 20070919
  Transmission Date: 20100525
  Serious: Yes (Death, Hospitalization, Other)
  Sender: FDA-Public Use
  Company Number: US-ELI_LILLY_AND_COMPANY-US200710001107

PATIENT
  Sex: Female
  Weight: 134.24 kg

DRUGS (16)
  1. GEMZAR [Suspect]
     Dosage: 800 MG/M2, OTHER
     Route: 042
     Dates: start: 20070731, end: 20070731
  2. CLONIDINE [Concomitant]
     Dates: start: 20070313, end: 20070818
  3. METOPROLOL TARTRATE [Concomitant]
     Indication: HYPERTENSION
     Dates: start: 20070330, end: 20070818
  4. DIOVAN [Concomitant]
     Indication: HYPERTENSION
     Dates: start: 20070313
  5. TYLENOL W/ CODEINE [Concomitant]
     Indication: PAIN
     Dates: start: 20070612, end: 20070806
  6. CARBIDOPA-LEVODOPA [Concomitant]
     Indication: PARKINSON'S DISEASE
     Dates: start: 20070313
  7. HYDRALAZINE HCL [Concomitant]
     Indication: HYPERTENSION
     Dates: start: 20070510
  8. MULTI-VITAMIN [Concomitant]
     Indication: VITAMIN SUPPLEMENTATION
     Dates: start: 20070313
  9. PREDNISONE [Concomitant]
     Indication: PAIN
     Dates: start: 20070313
  10. PREDNISONE [Concomitant]
     Dosage: 20 MG, DAILY (1/D)
     Dates: start: 20070804
  11. VOLTAREN                                /SCH/ [Concomitant]
     Indication: PAIN
     Dates: start: 20070703
  12. AMARYL [Concomitant]
     Dosage: UNK, UNK
     Dates: start: 20070222
  13. MAGNESIUM [Concomitant]
     Indication: SUPPLEMENTATION THERAPY
     Dates: start: 20070222, end: 20070818
  14. VITAMIN B-12 [Concomitant]
     Indication: VITAMIN SUPPLEMENTATION
     Dates: start: 20070612, end: 20070818
  15. EMEND [Concomitant]
     Indication: PROPHYLAXIS
     Dates: start: 20070731, end: 20070731
  16. ALOXI [Concomitant]
     Indication: PROPHYLAXIS
     Dosage: 0.25 MG, UNK
     Route: 042
     Dates: start: 20070731, end: 20070731

REACTIONS (15)
  - ANAEMIA [None]
  - ANXIETY DISORDER [None]
  - CARDIOMEGALY [None]
  - CHRONIC OBSTRUCTIVE PULMONARY DISEASE [None]
  - DEEP VEIN THROMBOSIS [None]
  - DIABETES MELLITUS [None]
  - DIARRHOEA [None]
  - DYSPNOEA [None]
  - HYPOTENSION [None]
  - MALIGNANT NEOPLASM PROGRESSION [None]
  - OSTEOARTHRITIS [None]
  - PLEURAL EFFUSION [None]
  - PNEUMONIA [None]
  - PULMONARY EMBOLISM [None]
  - SUPRAVENTRICULAR TACHYCARDIA [None]
